FAERS Safety Report 18629196 (Version 1)
Quarter: 2020Q4

REPORT INFORMATION
  Report Type: Spontaneous
  Country: US (occurrence: US)
  Receive Date: 20201217
  Receipt Date: 20201217
  Transmission Date: 20210114
  Serious: No
  Sender: FDA-Public Use
  Company Number: US-ESPERIONTHERAPEUTICS-2020USA04788

PATIENT
  Sex: Female

DRUGS (2)
  1. NEXLIZET [Suspect]
     Active Substance: BEMPEDOIC ACID\EZETIMIBE
     Indication: DIABETES MELLITUS
     Dosage: 180/10MG, QD
     Route: 048
  2. NEXLIZET [Suspect]
     Active Substance: BEMPEDOIC ACID\EZETIMIBE
     Indication: CARDIOVASCULAR DISORDER
     Dosage: 180/10MG, QD
     Route: 048

REACTIONS (1)
  - Oral mucosal blistering [Recovered/Resolved]
